FAERS Safety Report 10204725 (Version 1)
Quarter: 2014Q2

REPORT INFORMATION
  Report Type: Spontaneous
  Country: JP (occurrence: JP)
  Receive Date: 20140529
  Receipt Date: 20140529
  Transmission Date: 20141212
  Serious: Yes (Life-Threatening)
  Sender: FDA-Public Use
  Company Number: JP-GLAXOSMITHKLINE-B0996831A

PATIENT
  Age: 68 Year
  Sex: Male

DRUGS (2)
  1. VOTRIENT 200MG [Suspect]
     Indication: RENAL CELL CARCINOMA
     Route: 048
     Dates: start: 20140521
  2. UNKNOWN DRUG [Concomitant]
     Route: 065

REACTIONS (1)
  - Depressed level of consciousness [Unknown]
